FAERS Safety Report 14614576 (Version 1)
Quarter: 2018Q1

REPORT INFORMATION
  Report Type: Spontaneous
  Country: US (occurrence: US)
  Receive Date: 20180308
  Receipt Date: 20180308
  Transmission Date: 20180509
  Serious: No
  Sender: FDA-Public Use
  Company Number: US-PERRIGO-17US026423

PATIENT
  Age: 37 Year
  Sex: Female
  Weight: 74.83 kg

DRUGS (1)
  1. NICOTINE POLACRILEX [Suspect]
     Active Substance: NICOTINE
     Indication: SMOKING CESSATION THERAPY
     Dosage: 4 MG, 6 TO 7 TIMES DAILY, PRN
     Route: 002
     Dates: start: 20170809

REACTIONS (1)
  - Sensitivity of teeth [Unknown]

NARRATIVE: CASE EVENT DATE: 20170830
